FAERS Safety Report 20455002 (Version 1)
Quarter: 2022Q1

REPORT INFORMATION
  Report Type: Spontaneous
  Country: CA (occurrence: CA)
  Receive Date: 20220210
  Receipt Date: 20220210
  Transmission Date: 20220423
  Serious: Yes (Life-Threatening)
  Sender: FDA-Public Use
  Company Number: CA-TEVA-2022-CA-2006121

PATIENT
  Age: 84 Year
  Sex: Male

DRUGS (2)
  1. NITROFURANTOIN [Suspect]
     Active Substance: NITROFURANTOIN
     Indication: Escherichia urinary tract infection
     Route: 065
  2. TAMSULOSIN [Concomitant]
     Active Substance: TAMSULOSIN

REACTIONS (6)
  - Dyspnoea [Unknown]
  - Hypersensitivity pneumonitis [Unknown]
  - Lung consolidation [Unknown]
  - Pulmonary toxicity [Unknown]
  - Respiratory failure [Unknown]
  - Treatment noncompliance [Unknown]
